FAERS Safety Report 8832492 (Version 1)
Quarter: 2012Q4

REPORT INFORMATION
  Report Type: 
  Country: US (occurrence: US)
  Receive Date: 20121010
  Receipt Date: 20121010
  Transmission Date: 20130627
  Serious: No
  Sender: FDA-Public Use
  Company Number: US-BAYER-2012-104686

PATIENT
  Age: 49 Year
  Sex: Female

DRUGS (8)
  1. BETASERON [Suspect]
     Indication: MULTIPLE SCLEROSIS
     Dosage: UNK, QOD
     Route: 058
  2. VITAMIN D [Concomitant]
  3. BABY ASPIRIN [Concomitant]
     Dosage: UNK
  4. DIOVAN [Concomitant]
  5. PROZAC [Concomitant]
  6. CENTRUM [MINERALS NOS,VITAMINS NOS] [Concomitant]
  7. AMLODIPINE [Concomitant]
  8. KLONOPIN [Concomitant]

REACTIONS (2)
  - Depression [Unknown]
  - Tremor [Unknown]
